FAERS Safety Report 7102870-5 (Version None)
Quarter: 2010Q4

REPORT INFORMATION
  Report Type: 
  Country: None (occurrence: None)
  Receive Date: 20101115
  Receipt Date: 20101102
  Transmission Date: 20110411
  Serious: Yes (Hospitalization)
  Sender: FDA-Public Use
  Company Number: US-ELI_LILLY_AND_COMPANY-US201006005373

PATIENT
  Sex: Female

DRUGS (18)
  1. FORTEO [Suspect]
     Indication: OSTEOPOROSIS
     Dosage: 20 UG, DAILY (1/D)
     Route: 058
     Dates: start: 20100106
  2. FORTEO [Suspect]
     Dosage: 20 UG, DAILY (1/D)
     Dates: end: 20100909
  3. HYDROCODONE [Concomitant]
     Dosage: 5 MG, EVERY 6 HRS
  4. METOCLOPRAMIDE [Concomitant]
     Dosage: 10 MG, 3/D
  5. NEXIUM [Concomitant]
     Dosage: 40 MG, DAILY (1/D)
  6. METOPROLOL [Concomitant]
     Dosage: 50 MG, EACH EVENING
  7. NITROGLYCERIN [Concomitant]
     Dosage: 1 D/F, AS NEEDED
  8. MULTI-VITAMIN [Concomitant]
     Dosage: UNK, DAILY (1/D)
  9. SLOW-K [Concomitant]
     Dosage: 8 MG, DAILY (1/D)
  10. ANASTROZOLE [Concomitant]
     Indication: BREAST CANCER
     Dosage: 1 MG, EACH EVENING
  11. CALCITRIOL [Concomitant]
     Dosage: 5 MG, AS NEEDED
  12. ASPIRIN [Concomitant]
     Dosage: 81 MG, DAILY (1/D)
  13. VICODIN [Concomitant]
     Dosage: 10 MG, EVERY 6 HRS AS NEEDED
  14. ADVAIR DISKUS 100/50 [Concomitant]
     Dosage: UNK, 2/D
  15. PROAIR HFA [Concomitant]
     Dosage: 2 D/F, AS NEEDED
     Route: 055
  16. LISINOPRIL [Concomitant]
     Dosage: 5 MG, DAILY (1/D)
  17. CALCIUM CITRATE W/VITAMIN D NOS [Concomitant]
     Dosage: UNK, DAILY (1/D)
  18. IRON [Concomitant]
     Dosage: 65 MG, DAILY (1/D)

REACTIONS (13)
  - ABASIA [None]
  - ASTHENIA [None]
  - BONE PAIN [None]
  - CHEST PAIN [None]
  - FUNGAL INFECTION [None]
  - INJECTION SITE HAEMATOMA [None]
  - LIMB DISCOMFORT [None]
  - LUNG INFECTION [None]
  - MUSCLE SPASMS [None]
  - NAUSEA [None]
  - PAIN IN EXTREMITY [None]
  - PNEUMONIA [None]
  - SECRETION DISCHARGE [None]
